FAERS Safety Report 19273226 (Version 1)
Quarter: 2021Q2

REPORT INFORMATION
  Report Type: Report from Study
  Country: None (occurrence: US)
  Receive Date: 20210518
  Receipt Date: 20210518
  Transmission Date: 20210717
  Serious: Yes (Other)
  Sender: FDA-Public Use
  Company Number: US-ABBVIE-21K-163-3905925-00

PATIENT
  Sex: Female

DRUGS (1)
  1. RINVOQ [Suspect]
     Active Substance: UPADACITINIB
     Indication: RHEUMATOID ARTHRITIS
     Route: 048

REACTIONS (8)
  - Pain [Recovering/Resolving]
  - Arthropathy [Not Recovered/Not Resolved]
  - Concussion [Recovering/Resolving]
  - Gastric disorder [Unknown]
  - Road traffic accident [Not Recovered/Not Resolved]
  - Surgical failure [Unknown]
  - Insomnia [Not Recovered/Not Resolved]
  - Limb operation [Not Recovered/Not Resolved]

NARRATIVE: CASE EVENT DATE: 2021
